FAERS Safety Report 19236461 (Version 1)
Quarter: 2021Q2

REPORT INFORMATION
  Report Type: Spontaneous
  Country: JP (occurrence: JP)
  Receive Date: 20210510
  Receipt Date: 20210510
  Transmission Date: 20210717
  Serious: Yes (Other)
  Sender: FDA-Public Use
  Company Number: JP-ALLERGAN-2117532US

PATIENT
  Sex: Female

DRUGS (1)
  1. LINACLOTIDE ? BP [Suspect]
     Active Substance: LINACLOTIDE
     Indication: CONSTIPATION
     Dosage: UNK BEFORE MEAL
     Route: 048

REACTIONS (4)
  - Diarrhoea [Unknown]
  - Fall [Recovered/Resolved]
  - Depressed level of consciousness [Unknown]
  - Blood pressure decreased [Unknown]
